FAERS Safety Report 7888320-X (Version None)
Quarter: 2011Q4

REPORT INFORMATION
  Report Type: 
  Country: None (occurrence: None)
  Receive Date: 20111103
  Receipt Date: 20111024
  Transmission Date: 20120403
  Serious: Yes (Other)
  Sender: FDA-Public Use
  Company Number: US-BAYER-2011-105178

PATIENT
  Age: 44 Year
  Sex: Female

DRUGS (4)
  1. BETASERON [Suspect]
     Indication: MULTIPLE SCLEROSIS
     Dosage: 4 MIU, QOD
     Route: 058
     Dates: start: 20111007
  2. NEURONTIN [Concomitant]
  3. HYDROCODONE BITARTRATE [Concomitant]
  4. IBUPROFEN [Concomitant]
     Indication: PREMEDICATION

REACTIONS (7)
  - HYPOAESTHESIA [None]
  - PAIN IN EXTREMITY [None]
  - FATIGUE [None]
  - PYREXIA [None]
  - ASTHENIA [None]
  - MULTIPLE SCLEROSIS [None]
  - PARAESTHESIA [None]
